FAERS Safety Report 25669984 (Version 1)
Quarter: 2025Q3

REPORT INFORMATION
  Report Type: Spontaneous
  Country: US (occurrence: US)
  Receive Date: 20250812
  Receipt Date: 20250812
  Transmission Date: 20251021
  Serious: Yes (Life-Threatening, Hospitalization)
  Sender: MYLAN
  Company Number: US-MYLANLABS-2025M1066592

PATIENT
  Age: 55 Year
  Sex: Male

DRUGS (20)
  1. AMBRISENTAN [Suspect]
     Active Substance: AMBRISENTAN
     Indication: Pulmonary hypertension
  2. AMBRISENTAN [Suspect]
     Active Substance: AMBRISENTAN
     Route: 065
  3. AMBRISENTAN [Suspect]
     Active Substance: AMBRISENTAN
     Route: 065
  4. AMBRISENTAN [Suspect]
     Active Substance: AMBRISENTAN
  5. IMATINIB [Suspect]
     Active Substance: IMATINIB
     Indication: Pulmonary veno-occlusive disease
  6. IMATINIB [Suspect]
     Active Substance: IMATINIB
     Indication: Scleroderma
     Route: 065
  7. IMATINIB [Suspect]
     Active Substance: IMATINIB
     Route: 065
  8. IMATINIB [Suspect]
     Active Substance: IMATINIB
  9. VELETRI [Suspect]
     Active Substance: EPOPROSTENOL
     Indication: Pulmonary hypertension
  10. VELETRI [Suspect]
     Active Substance: EPOPROSTENOL
     Route: 055
  11. VELETRI [Suspect]
     Active Substance: EPOPROSTENOL
     Route: 055
  12. VELETRI [Suspect]
     Active Substance: EPOPROSTENOL
  13. NITRIC OXIDE [Suspect]
     Active Substance: NITRIC OXIDE
     Indication: Respiratory failure
  14. NITRIC OXIDE [Suspect]
     Active Substance: NITRIC OXIDE
     Route: 055
  15. NITRIC OXIDE [Suspect]
     Active Substance: NITRIC OXIDE
     Route: 055
  16. NITRIC OXIDE [Suspect]
     Active Substance: NITRIC OXIDE
  17. REMODULIN [Suspect]
     Active Substance: TREPROSTINIL
     Indication: Respiratory failure
  18. REMODULIN [Suspect]
     Active Substance: TREPROSTINIL
     Indication: Pulmonary hypertension
     Route: 042
  19. REMODULIN [Suspect]
     Active Substance: TREPROSTINIL
     Route: 042
  20. REMODULIN [Suspect]
     Active Substance: TREPROSTINIL

REACTIONS (2)
  - Drug ineffective [Unknown]
  - Off label use [Unknown]
